FAERS Safety Report 8175974-6 (Version None)
Quarter: 2012Q1

REPORT INFORMATION
  Report Type: 
  Country: None (occurrence: None)
  Receive Date: 20120301
  Receipt Date: 20120227
  Transmission Date: 20120608
  Serious: No
  Sender: FDA-Public Use
  Company Number: US-PFIZER INC-2012002651

PATIENT
  Sex: Female
  Weight: 118 kg

DRUGS (5)
  1. CHANTIX [Suspect]
     Indication: SMOKING CESSATION THERAPY
     Dosage: 0.5 MG, 1X/DAY
     Route: 048
     Dates: start: 20111118, end: 20110101
  2. CHANTIX [Suspect]
     Dosage: 1 MG, 2X/DAY
     Route: 048
     Dates: start: 20111209, end: 20120109
  3. XANAX [Concomitant]
     Dosage: UNK
  4. ADVAIR DISKUS 100/50 [Concomitant]
     Dosage: UNK
  5. BUSPAR [Concomitant]
     Dosage: UNK

REACTIONS (9)
  - LYMPHADENOPATHY [None]
  - IRRITABLE BOWEL SYNDROME [None]
  - SLEEP DISORDER [None]
  - INSOMNIA [None]
  - ABNORMAL DREAMS [None]
  - LIP BLISTER [None]
  - ORAL HERPES [None]
  - HYPERHIDROSIS [None]
  - BACTERIAL INFECTION [None]
